FAERS Safety Report 18761009 (Version 2)
Quarter: 2021Q3

REPORT INFORMATION
  Report Type: Spontaneous
  Country: US (occurrence: US)
  Receive Date: 20210120
  Receipt Date: 20210722
  Transmission Date: 20211014
  Serious: Yes (Hospitalization, Other)
  Sender: FDA-Public Use
  Company Number: US-CIPLA LTD.-2021US00263

PATIENT

DRUGS (2)
  1. WARFARIN [Suspect]
     Active Substance: WARFARIN
     Indication: ANTICOAGULANT THERAPY
     Dosage: UNK
     Route: 065
  2. WARFARIN [Suspect]
     Active Substance: WARFARIN
     Dosage: UNK (RESTARTED AT AT LOWER THERAPEUTIC GOAL)
     Route: 065

REACTIONS (7)
  - Acute kidney injury [Recovering/Resolving]
  - Anticoagulation drug level above therapeutic [Recovered/Resolved]
  - Anaemia [Unknown]
  - Benign familial haematuria [Recovering/Resolving]
  - Renal haemorrhage [Recovering/Resolving]
  - Anticoagulant-related nephropathy [Recovering/Resolving]
  - Renal tubular injury [Recovering/Resolving]
